FAERS Safety Report 7094397-4 (Version None)
Quarter: 2010Q4

REPORT INFORMATION
  Report Type: 
  Country: None (occurrence: None)
  Receive Date: 20101110
  Receipt Date: 20101026
  Transmission Date: 20110411
  Serious: Yes (Other)
  Sender: FDA-Public Use
  Company Number: PHHY2010FR73050

PATIENT
  Sex: Male

DRUGS (4)
  1. VALSARTAN  AND HYDROCHLOROTHIAZIDE [Suspect]
     Indication: HYPERTENSION
     Dosage: UNK
     Route: 048
     Dates: start: 20100501, end: 20100927
  2. EQUANIL [Suspect]
     Indication: ALCOHOLISM
     Dosage: UNK
     Route: 048
     Dates: start: 20100816, end: 20100927
  3. AOTAL [Suspect]
     Dosage: 4 DF DAILY
     Dates: start: 20100816, end: 20100927
  4. REVIA [Concomitant]
     Indication: ALCOHOLISM
     Dosage: UNK
     Dates: end: 20100816

REACTIONS (7)
  - ALANINE AMINOTRANSFERASE INCREASED [None]
  - ASPARTATE AMINOTRANSFERASE INCREASED [None]
  - BLOOD BILIRUBIN INCREASED [None]
  - GAMMA-GLUTAMYLTRANSFERASE INCREASED [None]
  - GLOMERULAR FILTRATION RATE DECREASED [None]
  - HEPATITIS B [None]
  - LIVER INJURY [None]
